FAERS Safety Report 12226920 (Version 1)
Quarter: 2016Q1

REPORT INFORMATION
  Report Type: Spontaneous
  Country: US (occurrence: US)
  Receive Date: 20160331
  Receipt Date: 20160331
  Transmission Date: 20160526
  Serious: No
  Sender: FDA-Public Use
  Company Number: US-GE HEALTHCARE MEDICAL DIAGNOSTICS-VISP-PR-1602S-0044

PATIENT
  Age: 27 Year
  Sex: Male

DRUGS (2)
  1. VISIPAQUE [Suspect]
     Active Substance: IODIXANOL
     Indication: PRODUCT USED FOR UNKNOWN INDICATION
     Route: 065
     Dates: start: 20160125, end: 20160125
  2. VISIPAQUE [Suspect]
     Active Substance: IODIXANOL
     Indication: DIAGNOSTIC PROCEDURE

REACTIONS (1)
  - Eye pruritus [Recovered/Resolved]

NARRATIVE: CASE EVENT DATE: 20160125
